FAERS Safety Report 5277562-8 (Version None)
Quarter: 2007Q1

REPORT INFORMATION
  Report Type: 
  Country: None (occurrence: None)
  Receive Date: 20070327
  Receipt Date: 20070315
  Transmission Date: 20070707
  Serious: Yes (Other)
  Sender: FDA-Public Use
  Company Number: PHBS2007JP04918

PATIENT

DRUGS (1)
  1. ZADITEN [Suspect]

REACTIONS (3)
  - AGITATION [None]
  - CRYING [None]
  - DYSSOMNIA [None]
